FAERS Safety Report 18675043 (Version 1)
Quarter: 2020Q4

REPORT INFORMATION
  Report Type: Spontaneous
  Country: US (occurrence: US)
  Receive Date: 20201228
  Receipt Date: 20201228
  Transmission Date: 20210114
  Serious: No
  Sender: FDA-Public Use
  Company Number: None

PATIENT
  Age: 58 Year
  Sex: Female
  Weight: 58.5 kg

DRUGS (1)
  1. VYVANSE [Suspect]
     Active Substance: LISDEXAMFETAMINE DIMESYLATE
     Indication: ATTENTION DEFICIT HYPERACTIVITY DISORDER
     Dosage: ?          QUANTITY:1 CAPSULE(S);?
     Route: 048
     Dates: start: 20201130

REACTIONS (7)
  - Stress [None]
  - Dry mouth [None]
  - Impaired work ability [None]
  - Sleep disorder [None]
  - Incorrect dose administered [None]
  - Vision blurred [None]
  - Product dispensing error [None]

NARRATIVE: CASE EVENT DATE: 20201201
